FAERS Safety Report 9985138 (Version 1)
Quarter: 2014Q1

REPORT INFORMATION
  Report Type: Report from Study
  Country: US (occurrence: US)
  Receive Date: 20140307
  Receipt Date: 20140307
  Transmission Date: 20141002
  Serious: No
  Sender: FDA-Public Use
  Company Number: US-ABBVIE-13P-163-1185180-00

PATIENT
  Age: 31 Year
  Sex: Female

DRUGS (4)
  1. HUMIRA [Suspect]
     Dates: start: 20131209, end: 20131209
  2. HUMIRA [Suspect]
  3. HUMIRA [Suspect]
     Indication: CROHN^S DISEASE
     Dates: start: 20131111, end: 20131111
  4. HUMIRA [Suspect]
     Dates: start: 20131125, end: 20131125

REACTIONS (1)
  - Extra dose administered [Unknown]
